FAERS Safety Report 6283846-7 (Version None)
Quarter: 2009Q3

REPORT INFORMATION
  Report Type: 
  Country: None (occurrence: None)
  Receive Date: 20090723
  Receipt Date: 20090723
  Transmission Date: 20100115
  Serious: No
  Sender: FDA-Public Use
  Company Number: None

PATIENT
  Age: 55 Year
  Sex: Female
  Weight: 68.0396 kg

DRUGS (1)
  1. INDOCYANINE GREEN [Suspect]
     Dosage: IV
     Route: 042

REACTIONS (10)
  - CHILLS [None]
  - INFLUENZA LIKE ILLNESS [None]
  - MEDICATION ERROR [None]
  - OFF LABEL USE [None]
  - OPTIC NERVE DISORDER [None]
  - POST PROCEDURAL COMPLICATION [None]
  - POSTOPERATIVE FEVER [None]
  - PRODUCT QUALITY ISSUE [None]
  - RETINAL INJURY [None]
  - RETINAL TOXICITY [None]
